FAERS Safety Report 19829588 (Version 2)
Quarter: 2021Q3

REPORT INFORMATION
  Report Type: Report from Study
  Country: US (occurrence: US)
  Receive Date: 20210914
  Receipt Date: 20210916
  Transmission Date: 20211014
  Serious: Yes (Hospitalization, Other)
  Sender: FDA-Public Use
  Company Number: US-BAYER-2021-181945

PATIENT
  Age: 56 Year
  Sex: Female
  Weight: 61.7 kg

DRUGS (19)
  1. TYLENOL [Concomitant]
     Active Substance: ACETAMINOPHEN
     Dosage: 500 MG EVERY 6 HRS AS NEEDED
  2. METFORMIN [Concomitant]
     Active Substance: METFORMIN HYDROCHLORIDE
     Dosage: 1000 MG, BID
     Route: 048
  3. MIDODRINE [Concomitant]
     Active Substance: MIDODRINE
     Dosage: 1 DF, TID
     Route: 048
  4. COLACE [Concomitant]
     Active Substance: DOCUSATE SODIUM
     Dosage: 100 MG, PRN
     Route: 048
  5. FERROUS SULFATE. [Concomitant]
     Active Substance: FERROUS SULFATE
     Dosage: 325 MG, QD
     Route: 048
  6. REMODULIN [Concomitant]
     Active Substance: TREPROSTINIL
     Dosage: 101 NG/KG/MIN RATE OF 43ML/HOUR PER CADD LEGACY PUMP
  7. MAGNESIUM OXIDE. [Concomitant]
     Active Substance: MAGNESIUM OXIDE
     Dosage: 400 MG, QD
     Route: 048
  8. REMODULIN [Concomitant]
     Active Substance: TREPROSTINIL
     Dosage: UNK
  9. MAGNESIUM [Concomitant]
     Active Substance: MAGNESIUM
     Dosage: 200 MG, BID
     Route: 048
  10. POTASSIUM CHLORIDE. [Concomitant]
     Active Substance: POTASSIUM CHLORIDE
     Dosage: 20 MEQ, BID
     Route: 048
  11. MONTELUKAST [Concomitant]
     Active Substance: MONTELUKAST SODIUM
     Dosage: 10 MG
     Route: 048
  12. CHOLECALCIFEROL [Concomitant]
     Active Substance: CHOLECALCIFEROL
     Dosage: 25 ?G, QD
     Route: 048
  13. ADEMPAS [Suspect]
     Active Substance: RIOCIGUAT
     Indication: PULMONARY ARTERIAL HYPERTENSION
     Dosage: 2 MG, TID
     Route: 048
  14. NASONEX [Concomitant]
     Active Substance: MOMETASONE FUROATE
     Dosage: 2 PUFF(S), PRN
     Route: 055
  15. ADEMPAS [Suspect]
     Active Substance: RIOCIGUAT
     Indication: PULMONARY ARTERIAL HYPERTENSION
     Dosage: 1 MG, TID
     Route: 048
     Dates: start: 20210202
  16. POTASSIUM CHLORIDE. [Concomitant]
     Active Substance: POTASSIUM CHLORIDE
     Dosage: 40 MEQ, QD
     Route: 048
  17. MULTIPLE VITAMIN [Concomitant]
     Active Substance: VITAMINS
     Dosage: 1 DF
     Route: 048
  18. ASPIRIN (CARDIO) [Concomitant]
     Active Substance: ASPIRIN
     Dosage: 81 MG, QD
     Route: 048
  19. VITAMIN E NOS [Concomitant]
     Active Substance: .ALPHA.-TOCOPHEROL
     Dosage: 100 U
     Route: 048

REACTIONS (9)
  - Weight increased [None]
  - Cardiac failure acute [None]
  - Hospitalisation [None]
  - Joint swelling [None]
  - Dyspnoea exertional [None]
  - Lung transplant [Unknown]
  - Peripheral swelling [Not Recovered/Not Resolved]
  - Sinus tachycardia [None]
  - Oedema peripheral [None]

NARRATIVE: CASE EVENT DATE: 202105
